FAERS Safety Report 15286138 (Version 3)
Quarter: 2018Q3

REPORT INFORMATION
  Report Type: Spontaneous
  Country: US (occurrence: US)
  Receive Date: 20180816
  Receipt Date: 20180925
  Transmission Date: 20181010
  Serious: Yes (Death, Life-Threatening, Hospitalization)
  Sender: FDA-Public Use
  Company Number: US-VIFOR (INTERNATIONAL) INC.-VIT-2018-08001

PATIENT
  Age: 67 Year
  Sex: Female
  Weight: 92.5 kg

DRUGS (2)
  1. MIRCERA [Suspect]
     Active Substance: METHOXY POLYETHYLENE GLYCOL-EPOETIN BETA
     Indication: ANAEMIA
     Route: 040
     Dates: start: 20180807, end: 20180807
  2. VENOFER [Suspect]
     Active Substance: IRON SUCROSE
     Indication: IRON DEFICIENCY ANAEMIA
     Route: 040
     Dates: start: 20180724, end: 20180807

REACTIONS (14)
  - Loss of consciousness [Fatal]
  - Tachycardia [Fatal]
  - Cardiac arrest [Fatal]
  - Anaphylactic reaction [Fatal]
  - Flushing [Fatal]
  - Malaise [Fatal]
  - Respiratory distress [Fatal]
  - Vomiting [Fatal]
  - Angioedema [Fatal]
  - Respiratory arrest [Fatal]
  - Unresponsive to stimuli [Fatal]
  - Dyspnoea [Fatal]
  - Sudden cardiac death [Fatal]
  - Circulatory collapse [Fatal]

NARRATIVE: CASE EVENT DATE: 20180807
